FAERS Safety Report 6184205-8 (Version None)
Quarter: 2009Q2

REPORT INFORMATION
  Report Type: 
  Country: None (occurrence: None)
  Receive Date: 20090508
  Receipt Date: 20090427
  Transmission Date: 20091009
  Serious: Yes (Hospitalization)
  Sender: FDA-Public Use
  Company Number: FR-CELGENEUS-056-C5013-09030384

PATIENT
  Sex: Male
  Weight: 47 kg

DRUGS (16)
  1. THALIDOMIDE [Suspect]
     Indication: MULTIPLE MYELOMA
     Route: 048
     Dates: start: 20090212
  2. PREDNISONE [Suspect]
     Indication: MULTIPLE MYELOMA
     Route: 065
     Dates: start: 20090212, end: 20090215
  3. MELPHALAN [Suspect]
     Indication: MULTIPLE MYELOMA
     Route: 065
     Dates: start: 20090212, end: 20090215
  4. LOVENOX [Concomitant]
     Indication: DRUG USE FOR UNKNOWN INDICATION
     Route: 065
  5. FENOFIBRATE [Concomitant]
     Route: 048
     Dates: start: 19990101
  6. AVANDIA [Concomitant]
     Route: 048
     Dates: start: 19990101
  7. CLASTOBAN [Concomitant]
     Indication: PROPHYLAXIS
     Route: 048
     Dates: start: 20090211
  8. MIRCERA [Concomitant]
     Route: 051
     Dates: start: 20081201, end: 20090318
  9. KAYEXALATE [Concomitant]
     Indication: BLOOD POTASSIUM
     Route: 048
  10. FUROSEMIDE [Concomitant]
     Route: 048
     Dates: start: 19990101, end: 20090318
  11. FUROSEMIDE [Concomitant]
     Route: 048
     Dates: start: 20090319
  12. LERCAN [Concomitant]
     Route: 048
     Dates: start: 19990101
  13. KARDEGIC [Concomitant]
     Indication: PROPHYLAXIS
     Route: 048
  14. TAMIFLU [Concomitant]
     Indication: INFLUENZA
     Route: 048
     Dates: start: 20090304, end: 20090310
  15. ARANESP [Concomitant]
     Route: 058
     Dates: start: 20090319
  16. DIFFU K [Concomitant]

REACTIONS (2)
  - FEBRILE BONE MARROW APLASIA [None]
  - LUNG DISORDER [None]
